FAERS Safety Report 9034240 (Version 1)
Quarter: 2013Q1

REPORT INFORMATION
  Report Type: Spontaneous
  Country: US (occurrence: None)
  Receive Date: 20130116
  Receipt Date: 20130116
  Transmission Date: 20140127
  Serious: Yes (Other)
  Sender: FDA-Public Use
  Company Number: None

PATIENT
  Age: 10 Year
  Sex: Female
  Weight: 38.56 kg

DRUGS (1)
  1. VYVANSE [Suspect]
     Dates: start: 20121107, end: 20130110

REACTIONS (2)
  - Anger [None]
  - Depression [None]
